FAERS Safety Report 6242590-2 (Version None)
Quarter: 2009Q2

REPORT INFORMATION
  Report Type: 
  Country: None (occurrence: None)
  Receive Date: 20090624
  Receipt Date: 20090612
  Transmission Date: 20091009
  Serious: Yes (Hospitalization)
  Sender: FDA-Public Use
  Company Number: US-AMGEN-US352208

PATIENT
  Age: 39 Year
  Sex: Female

DRUGS (1)
  1. NEUPOGEN [Suspect]
     Indication: PERIPHERAL BLOOD STEM CELL APHERESIS
     Dates: start: 20080815, end: 20080819

REACTIONS (1)
  - SUBDURAL HAEMATOMA [None]
